FAERS Safety Report 4354928-1 (Version None)
Quarter: 2004Q2

REPORT INFORMATION
  Report Type: 
  Country: None (occurrence: None)
  Receive Date: 20040510
  Receipt Date: 20040401
  Transmission Date: 20050107
  Serious: Yes (Death, Hospitalization)
  Sender: FDA-Public Use
  Company Number: PHBS2004PH04483

PATIENT
  Age: 64 Year
  Sex: Male

DRUGS (2)
  1. NEORAL [Suspect]
     Indication: RENAL TRANSPLANT
     Dosage: UNK, UNK
     Route: 048
  2. NEORAL [Suspect]
     Dosage: UNK, UNK

REACTIONS (9)
  - BLOOD LACTATE DEHYDROGENASE INCREASED [None]
  - CONVULSION [None]
  - HAEMOGLOBIN DECREASED [None]
  - HAEMOLYSIS [None]
  - HAEMORRHAGE [None]
  - NEUROTOXICITY [None]
  - PULMONARY CONGESTION [None]
  - PULMONARY OEDEMA [None]
  - TREMOR [None]
